FAERS Safety Report 13894363 (Version 1)
Quarter: 2017Q3

REPORT INFORMATION
  Report Type: Spontaneous
  Country: US (occurrence: US)
  Receive Date: 20170822
  Receipt Date: 20170822
  Transmission Date: 20171127
  Serious: Yes (Hospitalization, Other)
  Sender: FDA-Public Use
  Company Number: US-TEVA-799242USA

PATIENT
  Sex: Female

DRUGS (3)
  1. TAGAMET [Suspect]
     Active Substance: CIMETIDINE
     Route: 065
  2. ENOXAPARIN [Suspect]
     Active Substance: ENOXAPARIN
     Indication: PROTEIN DEFICIENCY
     Dosage: 120 MG / 0.8 ML
     Route: 065
  3. BENADRYL [Suspect]
     Active Substance: DIPHENHYDRAMINE HYDROCHLORIDE
     Route: 065

REACTIONS (6)
  - Thrombosis [Unknown]
  - Anaphylactic reaction [Unknown]
  - Injection site urticaria [Unknown]
  - Fall [Unknown]
  - Injection site pain [Unknown]
  - Hypersensitivity [Unknown]

NARRATIVE: CASE EVENT DATE: 201706
